FAERS Safety Report 9801486 (Version 3)
Quarter: 2015Q3

REPORT INFORMATION
  Report Type: Spontaneous
  Country: US (occurrence: US)
  Receive Date: 20140107
  Receipt Date: 20150730
  Transmission Date: 20151125
  Serious: No
  Sender: FDA-Public Use
  Company Number: US-GILEAD-US-CVT-100414

PATIENT
  Sex: Female

DRUGS (1)
  1. RANEXA [Suspect]
     Active Substance: RANOLAZINE
     Route: 048

REACTIONS (4)
  - Fatigue [Unknown]
  - Chest pain [Unknown]
  - Dizziness [Unknown]
  - Asthenia [Unknown]
